FAERS Safety Report 8556350-0 (Version None)
Quarter: 2012Q3

REPORT INFORMATION
  Report Type: 
  Country: None (occurrence: None)
  Receive Date: 20120801
  Receipt Date: 20120724
  Transmission Date: 20120928
  Serious: No
  Sender: FDA-Public Use
  Company Number: US-UCBSA-062427

PATIENT
  Age: 25 Year
  Sex: Female
  Weight: 55.3 kg

DRUGS (4)
  1. CIPROFLOXACIN HCL [Concomitant]
     Dates: start: 20050101
  2. ACETAMINOPHEN [Concomitant]
  3. CIMZIA [Suspect]
     Indication: CROHN'S DISEASE
     Dates: start: 20090914
  4. PREDNISONE [Concomitant]
     Dates: start: 20050101, end: 20090101

REACTIONS (1)
  - APPENDICITIS [None]
